FAERS Safety Report 7788883-9 (Version None)
Quarter: 2011Q3

REPORT INFORMATION
  Report Type: 
  Country: None (occurrence: None)
  Receive Date: 20110930
  Receipt Date: 20110920
  Transmission Date: 20111222
  Serious: No
  Sender: FDA-Public Use
  Company Number: US-B.I. PHARMACEUTICALS,INC./RIDGEFIELD-2011-BP-22584BP

PATIENT
  Sex: Female

DRUGS (18)
  1. DIGOXIN [Concomitant]
     Indication: CARDIAC DISORDER
     Dosage: 125 MCG
     Route: 048
     Dates: start: 20090101
  2. TYLENOL PM [Concomitant]
     Indication: SLEEP DISORDER THERAPY
  3. FIORICET [Concomitant]
     Indication: HEADACHE
     Route: 048
  4. PRADAXA [Suspect]
     Indication: CARDIAC DISORDER
     Dosage: 300 MG
     Route: 048
     Dates: start: 20101201
  5. VITAMIN D [Concomitant]
     Indication: VITAMIN SUPPLEMENTATION
     Route: 048
  6. PEPCID [Concomitant]
     Indication: GASTRIC DISORDER
  7. BENADRYL [Concomitant]
     Indication: SLEEP DISORDER THERAPY
     Route: 048
     Dates: start: 20100101
  8. VITAMIN E [Concomitant]
     Indication: VITAMIN SUPPLEMENTATION
     Route: 048
  9. OMEPRAZOLE [Concomitant]
     Indication: GASTRIC DISORDER
  10. TYLENOL PM [Concomitant]
     Indication: INSOMNIA
     Route: 048
  11. SYMBICORT [Concomitant]
     Indication: ASTHMA
     Dosage: 6 PUF
     Route: 055
  12. AMIODARONE HCL [Concomitant]
     Indication: CARDIAC DISORDER
     Route: 048
     Dates: start: 20090101
  13. PEPCID [Concomitant]
     Indication: HIATUS HERNIA
     Dosage: 20 MG
     Route: 048
     Dates: start: 20100101
  14. ZETIA [Concomitant]
     Indication: BLOOD CHOLESTEROL INCREASED
     Route: 048
     Dates: start: 20090101
  15. LORAZEPAM [Concomitant]
     Indication: ANXIETY
     Dosage: 4 MG
     Route: 048
     Dates: start: 20070101
  16. BENADRYL [Concomitant]
     Indication: INSOMNIA
  17. OMEPRAZOLE [Concomitant]
     Indication: HIATUS HERNIA
     Dosage: 80 MG
     Route: 048
     Dates: start: 20090101
  18. DICYCLOMINE [Concomitant]
     Dosage: 80 MG
     Route: 048
     Dates: start: 20090101

REACTIONS (5)
  - DECREASED APPETITE [None]
  - VOMITING [None]
  - HEADACHE [None]
  - ABDOMINAL PAIN UPPER [None]
  - DIZZINESS [None]
